FAERS Safety Report 10254045 (Version 1)
Quarter: 2014Q2

REPORT INFORMATION
  Report Type: Spontaneous
  Country: IT (occurrence: IT)
  Receive Date: 20140623
  Receipt Date: 20140623
  Transmission Date: 20141212
  Serious: Yes (Hospitalization)
  Sender: FDA-Public Use
  Company Number: IT-MYLANLABS-2014S1013828

PATIENT
  Age: 56 Year
  Sex: Male

DRUGS (1)
  1. CLOPIDOGREL [Suspect]
     Indication: MYOCARDIAL ISCHAEMIA
     Route: 048

REACTIONS (5)
  - Arthralgia [Unknown]
  - Asthenia [Unknown]
  - Headache [Unknown]
  - Myalgia [Unknown]
  - Vertigo [Unknown]
